FAERS Safety Report 6564613-3 (Version None)
Quarter: 2010Q1

REPORT INFORMATION
  Report Type: 
  Country: None (occurrence: None)
  Receive Date: 20100201
  Receipt Date: 20100121
  Transmission Date: 20100710
  Serious: No
  Sender: FDA-Public Use
  Company Number: PHEH2009US02068

PATIENT
  Sex: Male

DRUGS (1)
  1. EXJADE [Suspect]
     Indication: LYMPHOPROLIFERATIVE DISORDER
     Dosage: 2000MG DAILY
     Route: 048
     Dates: start: 20090210

REACTIONS (2)
  - LABORATORY TEST ABNORMAL [None]
  - VITAMIN D DECREASED [None]
